FAERS Safety Report 25473579 (Version 1)
Quarter: 2025Q2

REPORT INFORMATION
  Report Type: Spontaneous
  Country: US (occurrence: US)
  Receive Date: 20250624
  Receipt Date: 20250624
  Transmission Date: 20250717
  Serious: Yes (Other)
  Sender: APRECIA PHARMACEUTICALS
  Company Number: US-Aprecia Pharmaceuticals-APRE20250007

PATIENT
  Age: 25 Year
  Sex: Male

DRUGS (10)
  1. SPRITAM [Suspect]
     Active Substance: LEVETIRACETAM
     Indication: Seizure
     Route: 048
     Dates: start: 2020
  2. SPRITAM [Suspect]
     Active Substance: LEVETIRACETAM
     Route: 048
     Dates: start: 2020
  3. SPRITAM [Suspect]
     Active Substance: LEVETIRACETAM
     Route: 048
     Dates: start: 2020
  4. SPRITAM [Suspect]
     Active Substance: LEVETIRACETAM
     Route: 048
     Dates: start: 2020
  5. SPRITAM [Suspect]
     Active Substance: LEVETIRACETAM
     Route: 048
     Dates: start: 2020
  6. SPRITAM [Suspect]
     Active Substance: LEVETIRACETAM
     Route: 048
     Dates: start: 2020
  7. SPRITAM [Suspect]
     Active Substance: LEVETIRACETAM
     Dosage: 1000 MG (PLUS 250 MG FOR A TOTAL OF 1250 MG)
     Route: 048
  8. SPRITAM [Suspect]
     Active Substance: LEVETIRACETAM
     Dosage: 250 MG (PLUS 1000 MG FOR A TOTAL OF 1250 MG)
     Route: 048
  9. SPRITAM [Suspect]
     Active Substance: LEVETIRACETAM
     Dosage: 1000 MG (PLUS 250 MG FOR A TOTAL OF 1250 MG)
     Route: 048
  10. BACTRIM [Suspect]
     Active Substance: SULFAMETHOXAZOLE\TRIMETHOPRIM
     Indication: Limb injury
     Dosage: QD
     Route: 065

REACTIONS (9)
  - Seizure [Not Recovered/Not Resolved]
  - Condition aggravated [Not Recovered/Not Resolved]
  - Tongue injury [Recovered/Resolved]
  - Tongue biting [Recovered/Resolved]
  - Disorientation [Recovered/Resolved]
  - Product storage error [None]
  - Poor quality product administered [None]
  - Product quality issue [None]
  - Wrong technique in product usage process [None]

NARRATIVE: CASE EVENT DATE: 20200101
